FAERS Safety Report 13007996 (Version 3)
Quarter: 2017Q1

REPORT INFORMATION
  Report Type: Report from Study
  Country: GB (occurrence: GB)
  Receive Date: 20161208
  Receipt Date: 20170227
  Transmission Date: 20170428
  Serious: Yes (Death, Hospitalization, Other)
  Sender: FDA-Public Use
  Company Number: GB-AMGEN-GBRSL2016171363

PATIENT
  Age: 83 Year
  Sex: Male

DRUGS (1)
  1. ARANESP [Suspect]
     Active Substance: DARBEPOETIN ALFA
     Indication: PRODUCT USED FOR UNKNOWN INDICATION
     Dosage: 10 MUG, UNK
     Route: 065

REACTIONS (4)
  - Death [Fatal]
  - Pneumonia [Unknown]
  - Peritonitis [Unknown]
  - Viral infection [Unknown]

NARRATIVE: CASE EVENT DATE: 20170221
